FAERS Safety Report 6231547-3 (Version None)
Quarter: 2009Q2

REPORT INFORMATION
  Report Type: 
  Country: None (occurrence: None)
  Receive Date: 20090611
  Receipt Date: 20090528
  Transmission Date: 20091009
  Serious: Yes (Other)
  Sender: FDA-Public Use
  Company Number: 1000006651

PATIENT
  Sex: Male

DRUGS (9)
  1. MEMANTINE HCL [Suspect]
     Indication: COGNITIVE DISORDER
     Dosage: 5 MG (5 MG, 1 IN 1 D), ORAL
     Route: 048
  2. PREVISCAN [Concomitant]
  3. CORDARONE [Concomitant]
  4. TRIATEC [Concomitant]
  5. AMLODIPINE [Concomitant]
  6. ZOCOR [Concomitant]
  7. MOPRAL [Concomitant]
  8. IMOVANE [Concomitant]
  9. LANTUS [Concomitant]

REACTIONS (3)
  - ASPHYXIA [None]
  - BRONCHOSPASM [None]
  - SKIN DISCOLOURATION [None]
